FAERS Safety Report 16162969 (Version 1)
Quarter: 2019Q2

REPORT INFORMATION
  Report Type: Spontaneous
  Country: DE (occurrence: DE)
  Receive Date: 20190405
  Receipt Date: 20190405
  Transmission Date: 20190711
  Serious: Yes (Hospitalization, Other)
  Sender: FDA-Public Use
  Company Number: DE-ASTRAZENECA-2019SE49776

PATIENT
  Age: 65 Year
  Sex: Female
  Weight: 73 kg

DRUGS (4)
  1. SYMBICORT [Suspect]
     Active Substance: BUDESONIDE\FORMOTEROL FUMARATE DIHYDRATE
     Indication: PRODUCT USED FOR UNKNOWN INDICATION
     Dosage: STRENGTH: 320/9 MCG, UNKNOWN FREQUENCY UNKNOWN
     Route: 055
  2. HUMIRA [Suspect]
     Active Substance: ADALIMUMAB
     Dosage: ONCE A WEEK
     Route: 058
     Dates: start: 201810
  3. SEVIKAR [Suspect]
     Active Substance: AMLODIPINE BESYLATE\OLMESARTAN MEDOXOMIL
     Indication: PRODUCT USED FOR UNKNOWN INDICATION
     Dosage: 40MG/5MG DAILY
     Route: 065
     Dates: start: 2009
  4. HUMIRA [Suspect]
     Active Substance: ADALIMUMAB
     Indication: PSORIASIS
     Route: 058
     Dates: start: 20170214, end: 201810

REACTIONS (13)
  - Pruritus [Recovered/Resolved]
  - Psoriasis [Recovered/Resolved]
  - Varicose vein [Unknown]
  - Skin exfoliation [Recovering/Resolving]
  - General physical health deterioration [Recovered/Resolved]
  - Drug eruption [Recovered/Resolved]
  - Drug ineffective [Unknown]
  - Hepatitis A [Recovered/Resolved]
  - Skin disorder [Recovered/Resolved]
  - Skin irritation [Recovered/Resolved]
  - Eczema [Recovered/Resolved]
  - Erythema [Recovering/Resolving]
  - Rash papular [Recovering/Resolving]

NARRATIVE: CASE EVENT DATE: 2018
